FAERS Safety Report 24185556 (Version 2)
Quarter: 2024Q3

REPORT INFORMATION
  Report Type: Report from Study
  Country: BR (occurrence: BR)
  Receive Date: 20240807
  Receipt Date: 20240812
  Transmission Date: 20241017
  Serious: Yes (Other)
  Sender: MYLAN
  Company Number: BR-MYLANLABS-2024M1071947

PATIENT
  Age: 80 Year
  Sex: Female
  Weight: 70 kg

DRUGS (4)
  1. XALATAN [Interacting]
     Active Substance: LATANOPROST
     Indication: Intraocular pressure increased
     Dosage: 1 GTT DROPS, QD(PM)
     Route: 047
  2. XALATAN [Interacting]
     Active Substance: LATANOPROST
     Dosage: 1 GTT DROPS, QD(PM)
     Route: 047
     Dates: end: 20230620
  3. XALATAN [Interacting]
     Active Substance: LATANOPROST
     Dosage: 1 GTT DROPS, QD(PM)
     Route: 047
     Dates: start: 20240726
  4. LATANOPROST\TIMOLOL MALEATE [Suspect]
     Active Substance: LATANOPROST\TIMOLOL MALEATE
     Indication: Intraocular pressure increased
     Dosage: UNK
     Route: 065
     Dates: start: 20230620, end: 20240726

REACTIONS (2)
  - Undifferentiated spondyloarthritis [Not Recovered/Not Resolved]
  - Drug interaction [Recovered/Resolved]

NARRATIVE: CASE EVENT DATE: 20240726
